FAERS Safety Report 9290031 (Version 1)
Quarter: 2013Q2

REPORT INFORMATION
  Report Type: Spontaneous
  Country: US (occurrence: None)
  Receive Date: 20130514
  Receipt Date: 20130514
  Transmission Date: 20140414
  Serious: Yes (Death, Hospitalization)
  Sender: FDA-Public Use
  Company Number: None

PATIENT
  Age: 57 Year
  Sex: Female

DRUGS (1)
  1. METHOTREXATE [Suspect]
     Indication: RHEUMATOID ARTHRITIS
     Dates: start: 1994, end: 20111228

REACTIONS (10)
  - Drug-induced liver injury [None]
  - Encephalopathy [None]
  - Ascites [None]
  - Hepatic cirrhosis [None]
  - Non-alcoholic steatohepatitis [None]
  - Varices oesophageal [None]
  - International normalised ratio increased [None]
  - Hepatic failure [None]
  - Sepsis [None]
  - Unevaluable event [None]
